FAERS Safety Report 19365946 (Version 2)
Quarter: 2021Q2

REPORT INFORMATION
  Report Type: Spontaneous
  Country: JP (occurrence: JP)
  Receive Date: 20210602
  Receipt Date: 20210607
  Transmission Date: 20210717
  Serious: Yes (Other)
  Sender: FDA-Public Use
  Company Number: JP-JNJFOC-20210602277

PATIENT
  Age: 50 Year
  Sex: Female

DRUGS (1)
  1. ILOPROST. [Suspect]
     Active Substance: ILOPROST
     Indication: PRODUCT USED FOR UNKNOWN INDICATION
     Dates: start: 20210407

REACTIONS (1)
  - Sudden hearing loss [Recovered/Resolved]

NARRATIVE: CASE EVENT DATE: 20210511
